FAERS Safety Report 15074252 (Version 1)
Quarter: 2018Q2

REPORT INFORMATION
  Report Type: Report from Study
  Country: IT (occurrence: IT)
  Receive Date: 20180627
  Receipt Date: 20180627
  Transmission Date: 20180711
  Serious: Yes (Hospitalization)
  Sender: FDA-Public Use
  Company Number: IT-PFIZER INC-2018257482

PATIENT
  Age: 29 Year
  Sex: Male

DRUGS (4)
  1. EFFEXOR XR [Suspect]
     Active Substance: VENLAFAXINE HYDROCHLORIDE
     Dosage: 450 MG, SINGLE
     Route: 048
     Dates: start: 20161108, end: 20161109
  2. OLANZAPINE. [Suspect]
     Active Substance: OLANZAPINE
     Dosage: 20 MG, SINGLE
     Route: 048
     Dates: start: 20161108, end: 20161109
  3. NIMESULIDE [Suspect]
     Active Substance: NIMESULIDE
     Dosage: 300 MG, SINGLE
     Route: 048
     Dates: start: 20161108, end: 20161109
  4. DEPAKIN CHRONO [Suspect]
     Active Substance: VALPROIC ACID
     Dosage: 9000 MG, SINGLE
     Route: 048
     Dates: start: 20161108, end: 20161109

REACTIONS (5)
  - Dyskinesia [Recovered/Resolved]
  - Mydriasis [Recovered/Resolved]
  - Sopor [Recovered/Resolved]
  - Agitation [Recovered/Resolved]
  - Drug abuse [Recovered/Resolved]

NARRATIVE: CASE EVENT DATE: 20161109
